FAERS Safety Report 22255874 (Version 1)
Quarter: 2023Q2

REPORT INFORMATION
  Report Type: Spontaneous
  Country: JP (occurrence: JP)
  Receive Date: 20230426
  Receipt Date: 20230426
  Transmission Date: 20230721
  Serious: Yes (Hospitalization)
  Sender: FDA-Public Use
  Company Number: JP-Teva Takeda Yakuhin-2023-JP-001026J

PATIENT
  Age: 79 Year
  Sex: Male

DRUGS (1)
  1. PREDNISOLONE [Suspect]
     Active Substance: PREDNISOLONE
     Indication: Product used for unknown indication
     Route: 065
     Dates: start: 201602, end: 202112

REACTIONS (4)
  - Spinal compression fracture [Unknown]
  - Osteoporosis [Unknown]
  - Steroid diabetes [Unknown]
  - Osteonecrosis [Unknown]
